FAERS Safety Report 25473365 (Version 1)
Quarter: 2025Q2

REPORT INFORMATION
  Report Type: Spontaneous
  Country: CA (occurrence: CA)
  Receive Date: 20250624
  Receipt Date: 20250624
  Transmission Date: 20250716
  Serious: Yes (Other)
  Sender: PFIZER
  Company Number: CA-PFIZER INC-202500125973

PATIENT
  Age: 3 Year
  Sex: Male

DRUGS (2)
  1. SOMATROPIN [Suspect]
     Active Substance: SOMATROPIN
     Indication: Prader-Willi syndrome
     Dosage: 200 UG, WEEKLY, 6 PER WEEK
     Route: 058
     Dates: start: 20221003, end: 2023
  2. SOMATROPIN [Suspect]
     Active Substance: SOMATROPIN
     Dosage: 400 UG, WEEKLY, 6 PER WEEK
     Route: 058
     Dates: start: 2023

REACTIONS (3)
  - Cryptorchism [Unknown]
  - Conjunctivitis [Unknown]
  - Strabismus [Unknown]

NARRATIVE: CASE EVENT DATE: 20250130
